FAERS Safety Report 7342854-5 (Version None)
Quarter: 2011Q1

REPORT INFORMATION
  Report Type: 
  Country: None (occurrence: None)
  Receive Date: 20110308
  Receipt Date: 20110308
  Transmission Date: 20110831
  Serious: Yes (Other)
  Sender: FDA-Public Use
  Company Number: None

PATIENT
  Age: 18 Year
  Sex: Female
  Weight: 57 kg

DRUGS (1)
  1. PREDNISONE [Suspect]
     Indication: ADDISON'S DISEASE
     Dosage: 5MG - 1/2 TAB BID P.O. 047
     Route: 048
     Dates: start: 20101101, end: 20110201

REACTIONS (5)
  - DRUG INEFFECTIVE [None]
  - MALAISE [None]
  - ADDISON'S DISEASE [None]
  - DRUG DOSE OMISSION [None]
  - TREATMENT NONCOMPLIANCE [None]
